FAERS Safety Report 18856720 (Version 3)
Quarter: 2021Q1

REPORT INFORMATION
  Report Type: Spontaneous
  Country: US (occurrence: US)
  Receive Date: 20210207
  Receipt Date: 20210324
  Transmission Date: 20210420
  Serious: Yes (Other)
  Sender: FDA-Public Use
  Company Number: US-TAKEDA-2021TUS006152

PATIENT
  Age: 23 Year
  Sex: Female
  Weight: 72 kg

DRUGS (4)
  1. TRINTELLIX [Suspect]
     Active Substance: VORTIOXETINE HYDROBROMIDE
     Dosage: 10 MILLIGRAM, QD
     Route: 048
  2. TRINTELLIX [Suspect]
     Active Substance: VORTIOXETINE HYDROBROMIDE
     Indication: DEPRESSION
     Dosage: 10 MILLIGRAM, QD
     Route: 048
     Dates: start: 20201207
  3. TRINTELLIX [Suspect]
     Active Substance: VORTIOXETINE HYDROBROMIDE
     Indication: ANXIETY
     Dosage: 5 MILLIGRAM, QD
     Route: 048
  4. MELATONIN [Concomitant]
     Active Substance: MELATONIN
     Indication: INSOMNIA
     Dosage: UNK
     Route: 048
     Dates: start: 20210125

REACTIONS (6)
  - Mental impairment [Unknown]
  - Loss of personal independence in daily activities [Unknown]
  - Disturbance in attention [Recovered/Resolved]
  - Slow speech [Unknown]
  - Feeling abnormal [Recovered/Resolved]
  - Condition aggravated [Recovered/Resolved]

NARRATIVE: CASE EVENT DATE: 20210125
